FAERS Safety Report 18223264 (Version 2)
Quarter: 2020Q3

REPORT INFORMATION
  Report Type: Spontaneous
  Country: FR (occurrence: FR)
  Receive Date: 20200902
  Receipt Date: 20200908
  Transmission Date: 20201103
  Serious: Yes (Death, Life-Threatening, Hospitalization, Other)
  Sender: FDA-Public Use
  Company Number: FR-PFIZER INC-2020339017

PATIENT
  Age: 43 Year
  Sex: Female

DRUGS (2)
  1. ALPRAZOLAM. [Suspect]
     Active Substance: ALPRAZOLAM
     Dosage: UNK
  2. TRAMADOL. [Suspect]
     Active Substance: TRAMADOL
     Dosage: UNK

REACTIONS (17)
  - Spinal cord ischaemia [Fatal]
  - Hyperproteinaemia [Unknown]
  - Myelitis [Fatal]
  - Quadriplegia [Fatal]
  - Alcohol poisoning [Fatal]
  - Vascular compression [Fatal]
  - Hypotension [Unknown]
  - Spinal disorder [Fatal]
  - Spinal cord injury [Fatal]
  - Stress cardiomyopathy [Recovered/Resolved]
  - Pneumonia [Fatal]
  - Myelopathy [Fatal]
  - Toxicity to various agents [Fatal]
  - Cardiogenic shock [Recovered/Resolved]
  - Respiratory failure [Fatal]
  - Diaphragmatic paralysis [Fatal]
  - Loss of consciousness [Fatal]
